FAERS Safety Report 16838532 (Version 2)
Quarter: 2019Q3

REPORT INFORMATION
  Report Type: Spontaneous
  Country: GB (occurrence: GB)
  Receive Date: 20190923
  Receipt Date: 20190927
  Transmission Date: 20191005
  Serious: Yes (Other)
  Sender: FDA-Public Use
  Company Number: GB-KADMON PHARMACEUTICALS, LLC-KAD-201909-01483

PATIENT
  Age: 14 Year
  Sex: Male

DRUGS (11)
  1. CYCLOPHOSPHAMIDE. [Concomitant]
     Active Substance: CYCLOPHOSPHAMIDE
  2. PREDNISOLONE. [Concomitant]
     Active Substance: PREDNISOLONE
  3. PENICILLIN-V [Concomitant]
     Active Substance: PENICILLIN V
  4. RANITIDINE. [Concomitant]
     Active Substance: RANITIDINE
  5. RIBAVIRIN. [Suspect]
     Active Substance: RIBAVIRIN
  6. VIRAZOLE [Suspect]
     Active Substance: RIBAVIRIN
  7. FOLIC ACID. [Concomitant]
     Active Substance: FOLIC ACID
  8. PULMICORT TURBUHALER [Concomitant]
     Active Substance: BUDESONIDE
  9. GAMMAGLOBULIN [Concomitant]
     Active Substance: HUMAN IMMUNOGLOBULIN G
  10. NYSTATIN. [Concomitant]
     Active Substance: NYSTATIN
  11. VENTOLIN [Concomitant]
     Active Substance: ALBUTEROL SULFATE

REACTIONS (3)
  - Hypertension [Recovered/Resolved]
  - Bradycardia [Recovered/Resolved]
  - Off label use [Unknown]
